FAERS Safety Report 11108169 (Version 3)
Quarter: 2015Q3

REPORT INFORMATION
  Report Type: Spontaneous
  Country: US (occurrence: US)
  Receive Date: 20150512
  Receipt Date: 20150818
  Transmission Date: 20151125
  Serious: Yes (Hospitalization, Other)
  Sender: FDA-Public Use
  Company Number: US-GLAXOSMITHKLINE-US2015GSK063156

PATIENT
  Age: 63 Year
  Sex: Female
  Weight: 43.84 kg

DRUGS (9)
  1. ZOMETA [Concomitant]
     Active Substance: ZOLEDRONIC ACID
  2. MARINOL [Concomitant]
     Active Substance: DRONABINOL
  3. OXYCODONE [Concomitant]
     Active Substance: OXYCODONE
  4. VOTRIENT [Suspect]
     Active Substance: PAZOPANIB HYDROCHLORIDE
     Indication: RENAL CANCER
     Dosage: 800 MG, QD
     Route: 048
     Dates: start: 20150316, end: 201504
  5. COLACE [Concomitant]
     Active Substance: DOCUSATE SODIUM
  6. MORPHINE [Concomitant]
     Active Substance: MORPHINE
  7. VOTRIENT [Suspect]
     Active Substance: PAZOPANIB HYDROCHLORIDE
     Dosage: 800 MG, QD
     Dates: start: 201504
  8. CENTRUM [Concomitant]
     Active Substance: VITAMINS
  9. ENSURE [Concomitant]
     Active Substance: AMINO ACIDS\DEXTROSE\ELECTROLYTES NOS\SOYBEAN OIL\VITAMINS

REACTIONS (10)
  - Bone pain [Unknown]
  - Decreased appetite [Unknown]
  - Weight decreased [Recovering/Resolving]
  - Rectal haemorrhage [Unknown]
  - Abdominal pain [Unknown]
  - Fatigue [Unknown]
  - Pain in extremity [Unknown]
  - Gastrointestinal haemorrhage [Unknown]
  - Anaemia [Recovering/Resolving]
  - Arthralgia [Unknown]

NARRATIVE: CASE EVENT DATE: 201504
